FAERS Safety Report 6101568-X (Version None)
Quarter: 2009Q1

REPORT INFORMATION
  Report Type: 
  Country: None (occurrence: None)
  Receive Date: 20090303
  Receipt Date: 20090303
  Transmission Date: 20090719
  Serious: Yes (Other)
  Sender: FDA-Public Use
  Company Number: None

PATIENT
  Age: 62 Year
  Sex: Male
  Weight: 92.9874 kg

DRUGS (2)
  1. CVS ALLERGY RELIEF PILLS [Suspect]
     Indication: HYPERSENSITIVITY
     Dosage: AS ON THE LABEL
     Dates: start: 20060312, end: 20060315
  2. CVS ALLERGY RELIEF PILLS [Suspect]
     Indication: NASOPHARYNGITIS
     Dosage: AS ON THE LABEL
     Dates: start: 20060312, end: 20060315

REACTIONS (6)
  - ANHEDONIA [None]
  - CONFUSIONAL STATE [None]
  - FEAR [None]
  - HALLUCINATION [None]
  - MEMORY IMPAIRMENT [None]
  - MENTAL DISORDER [None]
